FAERS Safety Report 5499020-8 (Version None)
Quarter: 2007Q4

REPORT INFORMATION
  Report Type: 
  Country: None (occurrence: None)
  Receive Date: 20071026
  Receipt Date: 20070516
  Transmission Date: 20080405
  Serious: No
  Sender: FDA-Public Use
  Company Number: A0651855A

PATIENT
  Age: 75 Year
  Sex: Female

DRUGS (3)
  1. ADVAIR DISKUS 100/50 [Suspect]
     Indication: ASTHMA
     Dosage: 1PUFF TWICE PER DAY
     Route: 055
  2. COMBIVENT [Concomitant]
  3. LIPITOR [Concomitant]

REACTIONS (3)
  - EYE DISORDER [None]
  - FOREIGN BODY IN EYE [None]
  - VISION BLURRED [None]
